FAERS Safety Report 6441551-8 (Version None)
Quarter: 2009Q4

REPORT INFORMATION
  Report Type: 
  Country: None (occurrence: None)
  Receive Date: 20091116
  Receipt Date: 20091106
  Transmission Date: 20100525
  Serious: Yes (Other)
  Sender: FDA-Public Use
  Company Number: GXKR2009ES12245

PATIENT
  Age: 50 Year
  Sex: Female

DRUGS (5)
  1. ALPRAZOLAM (NGX) [Suspect]
     Dosage: UPTO 8 MG/DAY
     Route: 065
  2. PARACETAMOL (NGX) [Suspect]
     Indication: MIGRAINE
     Dosage: 2500 MG/DAY
     Route: 065
  3. IBUPROFEN (NCH) [Suspect]
     Dosage: UPTO 600 MG/DAY
     Route: 065
  4. ALKALOIDS, EXCL RAUWOLFIA [Suspect]
     Route: 065
  5. CLONAZEPAM [Concomitant]
     Dosage: 6 MG/DAY
     Route: 065

REACTIONS (4)
  - DETOXIFICATION [None]
  - DRUG ABUSE [None]
  - DRUG DEPENDENCE [None]
  - SYMPTOM MASKED [None]
